FAERS Safety Report 23549881 (Version 2)
Quarter: 2024Q1

REPORT INFORMATION
  Report Type: Spontaneous
  Country: IL (occurrence: IL)
  Receive Date: 20240221
  Receipt Date: 20240226
  Transmission Date: 20240409
  Serious: Yes (Death)
  Sender: FDA-Public Use
  Company Number: IL-AstraZeneca-2024-140375

PATIENT
  Age: 70 Year
  Sex: Female

DRUGS (1)
  1. TRASTUZUMAB DERUXTECAN [Suspect]
     Active Substance: TRASTUZUMAB DERUXTECAN
     Indication: Gastric cancer
     Dosage: UNK
     Route: 042
     Dates: start: 20240101, end: 20240207

REACTIONS (1)
  - Hypoalbuminaemia [Fatal]

NARRATIVE: CASE EVENT DATE: 20240102
